FAERS Safety Report 17811034 (Version 1)
Quarter: 2020Q2

REPORT INFORMATION
  Report Type: Spontaneous
  Country: FR (occurrence: FR)
  Receive Date: 20200521
  Receipt Date: 20200521
  Transmission Date: 20200714
  Serious: Yes (Hospitalization)
  Sender: FDA-Public Use
  Company Number: NVSC2020FR137772

PATIENT
  Age: 44 Year
  Sex: Female
  Weight: 77 kg

DRUGS (5)
  1. OMEPRAZOLE SODIUM [Concomitant]
     Active Substance: OMEPRAZOLE SODIUM
     Indication: PRODUCT USED FOR UNKNOWN INDICATION
     Dosage: UNK
     Route: 048
  2. GUTRON [Concomitant]
     Active Substance: MIDODRINE
     Indication: MUSCULAR WEAKNESS
     Dosage: UNK
     Route: 048
  3. OFLOCET [Suspect]
     Active Substance: OFLOXACIN
     Indication: TYMPANOPLASTY
     Dosage: UNK
     Route: 001
     Dates: start: 20191216, end: 20191222
  4. MESTINON [Concomitant]
     Active Substance: PYRIDOSTIGMINE BROMIDE
     Indication: MUSCULAR WEAKNESS
     Dosage: UNK
     Route: 048
  5. AMOXICILLIN TRIHYDRATE [Suspect]
     Active Substance: AMOXICILLIN
     Indication: TYMPANOPLASTY
     Dosage: UNK
     Route: 048
     Dates: start: 20191216, end: 20191222

REACTIONS (1)
  - Myasthenia gravis [Not Recovered/Not Resolved]

NARRATIVE: CASE EVENT DATE: 201912
